FAERS Safety Report 4365429-9 (Version None)
Quarter: 2004Q2

REPORT INFORMATION
  Report Type: 
  Country: None (occurrence: None)
  Receive Date: 20040520
  Receipt Date: 20040513
  Transmission Date: 20050107
  Serious: No
  Sender: FDA-Public Use
  Company Number: 2004UW01142

PATIENT
  Age: 32 Year
  Sex: Female
  Weight: 90.7194 kg

DRUGS (5)
  1. RHINOCORT [Suspect]
     Indication: RHINITIS ALLERGIC
     Dosage: 1 SPRAYB DAILY IN
     Route: 055
     Dates: start: 20040112, end: 20040115
  2. ADVAIR DISKUS 100/50 [Concomitant]
  3. PAXIL [Concomitant]
  4. ALBUTEROL [Concomitant]
  5. BENTYL [Concomitant]

REACTIONS (2)
  - ANAPHYLACTIC REACTION [None]
  - DRUG HYPERSENSITIVITY [None]
